FAERS Safety Report 11990529 (Version 1)
Quarter: 2016Q1

REPORT INFORMATION
  Report Type: Spontaneous
  Country: US (occurrence: US)
  Receive Date: 20160202
  Receipt Date: 20160202
  Transmission Date: 20160526
  Serious: Yes (Other)
  Sender: FDA-Public Use
  Company Number: US-GLAXOSMITHKLINE-US2016012007

PATIENT
  Age: 79 Year
  Sex: Male

DRUGS (8)
  1. ANORO ELLIPTA [Suspect]
     Active Substance: UMECLIDINIUM BROMIDE\VILANTEROL TRIFENATATE
     Indication: CHRONIC OBSTRUCTIVE PULMONARY DISEASE
     Dosage: 1 PUFF(S), QD
     Route: 055
  2. FLECAINIDE [Concomitant]
     Active Substance: FLECAINIDE
  3. METOPROLOL. [Concomitant]
     Active Substance: METOPROLOL
  4. TRIAMTERENE. [Concomitant]
     Active Substance: TRIAMTERENE
  5. OMEPRAZOLE. [Concomitant]
     Active Substance: OMEPRAZOLE
  6. TRAMADOL. [Concomitant]
     Active Substance: TRAMADOL
  7. ELIQUIS [Concomitant]
     Active Substance: APIXABAN
  8. MELOXICAM. [Concomitant]
     Active Substance: MELOXICAM

REACTIONS (6)
  - Condition aggravated [Not Recovered/Not Resolved]
  - Mobility decreased [Recovered/Resolved]
  - Joint fluid drainage [Unknown]
  - Arthralgia [Recovering/Resolving]
  - Pain in extremity [Not Recovered/Not Resolved]
  - Oedema peripheral [Unknown]

NARRATIVE: CASE EVENT DATE: 20160120
